FAERS Safety Report 8448091-5 (Version None)
Quarter: 2012Q2

REPORT INFORMATION
  Report Type: 
  Country: None (occurrence: None)
  Receive Date: 20120619
  Receipt Date: 20120613
  Transmission Date: 20120825
  Serious: Yes (Death, Life-Threatening, Hospitalization, Other)
  Sender: FDA-Public Use
  Company Number: JP-ELI_LILLY_AND_COMPANY-JP201012000743

PATIENT
  Age: 69 Year
  Sex: Male

DRUGS (2)
  1. GEMZAR [Suspect]
     Indication: PANCREATIC CARCINOMA STAGE IV
     Dosage: 1000 MG/M2, OTHER
     Route: 042
     Dates: start: 20090401, end: 20090101
  2. GEMZAR [Suspect]
     Dosage: 800 MG/M2, OTHER
     Route: 042
     Dates: start: 20090101, end: 20100501

REACTIONS (7)
  - SHOCK [None]
  - PANCYTOPENIA [None]
  - ANAEMIA [None]
  - PYREXIA [None]
  - NEOPLASM PROGRESSION [None]
  - GASTROINTESTINAL HAEMORRHAGE [None]
  - SHUNT MALFUNCTION [None]
